FAERS Safety Report 10769513 (Version 1)
Quarter: 2015Q1

REPORT INFORMATION
  Report Type: Spontaneous
  Country: US (occurrence: None)
  Receive Date: 20150205
  Receipt Date: 20150205
  Transmission Date: 20150721
  Serious: Yes (Hospitalization)
  Sender: FDA-Public Use
  Company Number: None

PATIENT
  Age: 60 Year
  Sex: Male
  Weight: 49.1 kg

DRUGS (19)
  1. VITD [Concomitant]
  2. METFORMIN [Concomitant]
     Active Substance: METFORMIN HYDROCHLORIDE
  3. ROBITUSSIN (GUAIFENESIN) [Concomitant]
     Active Substance: GUAIFENESIN
  4. RAZADYNE [Suspect]
     Active Substance: GALANTAMINE HYDROBROMIDE
  5. EFFEXOR [Suspect]
     Active Substance: VENLAFAXINE HYDROCHLORIDE
  6. DESYREL [Suspect]
     Active Substance: TRAZODONE HYDROCHLORIDE
  7. NAMENDA [Suspect]
     Active Substance: MEMANTINE HYDROCHLORIDE
  8. MAG HYDROXIDE [Concomitant]
  9. OSCAL [Concomitant]
     Active Substance: CALCIUM CARBONATE
  10. APAP [Concomitant]
     Active Substance: ACETAMINOPHEN
  11. ARIPIPRAZOLE. [Suspect]
     Active Substance: ARIPIPRAZOLE
  12. LEVAQUIN [Concomitant]
     Active Substance: LEVOFLOXACIN
  13. KLONOPIN [Suspect]
     Active Substance: CLONAZEPAM
  14. NAMENDA XR [Suspect]
     Active Substance: MEMANTINE HYDROCHLORIDE
  15. CA [Concomitant]
  16. ASCORBIC ACID. [Concomitant]
     Active Substance: ASCORBIC ACID
  17. MIRALAX [Concomitant]
     Active Substance: POLYETHYLENE GLYCOL 3350
  18. FLOMAX [Concomitant]
     Active Substance: TAMSULOSIN HYDROCHLORIDE
  19. IMODIUM [Concomitant]
     Active Substance: LOPERAMIDE HYDROCHLORIDE

REACTIONS (2)
  - Anticholinergic syndrome [None]
  - Serotonin syndrome [None]

NARRATIVE: CASE EVENT DATE: 20141130
